FAERS Safety Report 9833067 (Version 1)
Quarter: 2014Q1

REPORT INFORMATION
  Report Type: Spontaneous
  Country: US (occurrence: US)
  Receive Date: 20140121
  Receipt Date: 20140121
  Transmission Date: 20141002
  Serious: Yes (Other)
  Sender: FDA-Public Use
  Company Number: CHPA2014US000876

PATIENT
  Sex: Female

DRUGS (4)
  1. GAS-X W/MAALOX ES A+A FASTTABS UNKNOWN [Suspect]
     Indication: FLATULENCE
     Dosage: 1 DF, PRN
     Route: 048
  2. GAS-X W/MAALOX ES A+A FASTTABS UNKNOWN [Suspect]
     Indication: ABDOMINAL DISTENSION
  3. GAS-X UNKNOWN [Suspect]
     Indication: FLATULENCE
     Route: 048
  4. GAS-X UNKNOWN [Suspect]
     Indication: ABDOMINAL DISTENSION

REACTIONS (2)
  - Upper limb fracture [Not Recovered/Not Resolved]
  - Therapeutic response unexpected [Unknown]
